FAERS Safety Report 8429168-7 (Version None)
Quarter: 2012Q2

REPORT INFORMATION
  Report Type: 
  Country: None (occurrence: None)
  Receive Date: 20120323
  Receipt Date: 20111110
  Transmission Date: 20120825
  Serious: Yes (Hospitalization)
  Sender: FDA-Public Use
  Company Number: 163-21880-11072821

PATIENT
  Age: 71 Year
  Sex: Female
  Weight: 92.5338 kg

DRUGS (13)
  1. TOPROL-XL [Concomitant]
  2. VALTREX [Concomitant]
  3. STOOL SOFTENER (DOCUSATE SODIUM) [Concomitant]
  4. DEXAMETHASONE [Suspect]
     Indication: MULTIPLE MYELOMA
     Dates: start: 20010301, end: 20010618
  5. MEVACOR [Concomitant]
  6. SYNTHROID [Concomitant]
  7. NEXIUM [Concomitant]
  8. FIBER (POLYCARBOPHIL CALCIUM) [Concomitant]
  9. REVLIMID [Suspect]
     Indication: MULTIPLE MYELOMA
     Dosage: 10 MG, DAILY 21/7, PO
     Route: 048
     Dates: start: 20110301
  10. MOBIC [Concomitant]
  11. ASPIRIN [Concomitant]
  12. EFFEXOR [Concomitant]
  13. LOMOTIL [Concomitant]

REACTIONS (1)
  - ISCHAEMIC STROKE [None]
